FAERS Safety Report 16642983 (Version 1)
Quarter: 2019Q3

REPORT INFORMATION
  Report Type: Spontaneous
  Country: US (occurrence: US)
  Receive Date: 20190615
  Receipt Date: 20190615
  Transmission Date: 20191004
  Serious: No
  Sender: FDA-Public Use
  Company Number: None

PATIENT
  Age: 13 Year
  Sex: Male

DRUGS (1)
  1. GENOTROPIN [Suspect]
     Active Substance: SOMATROPIN
     Indication: HYPOPITUITARISM
     Dosage: ?          OTHER DOSE:1.6MG;?
     Route: 058
     Dates: start: 201804

REACTIONS (2)
  - Restless legs syndrome [None]
  - Arthralgia [None]

NARRATIVE: CASE EVENT DATE: 201804
